FAERS Safety Report 4584114-1 (Version None)
Quarter: 2005Q1

REPORT INFORMATION
  Report Type: 
  Country: None (occurrence: None)
  Receive Date: 20050216
  Receipt Date: 20050207
  Transmission Date: 20050727
  Serious: Yes (Other)
  Sender: FDA-Public Use
  Company Number: CA-ROCHE-394923

PATIENT
  Age: 91 Year
  Sex: Female

DRUGS (4)
  1. TAMIFLU [Suspect]
     Indication: INFLUENZA
     Route: 048
     Dates: start: 20050203
  2. TAMIFLU [Suspect]
     Route: 048
     Dates: start: 20050128, end: 20050202
  3. LEVAQUIN [Suspect]
     Indication: DRUG USE FOR UNKNOWN INDICATION
     Dosage: DAILY
     Route: 048
     Dates: start: 20050129, end: 20050204
  4. WARFARIN SODIUM [Concomitant]
     Dosage: THERAPY STOPPED ON 5 FEB 2005 AND RESTARTED ON 9 FEBRUARY 2005
     Route: 048
     Dates: start: 20040716

REACTIONS (1)
  - INTERNATIONAL NORMALISED RATIO INCREASED [None]
